FAERS Safety Report 24053966 (Version 1)
Quarter: 2024Q3

REPORT INFORMATION
  Report Type: Spontaneous
  Country: FR (occurrence: FR)
  Receive Date: 20240705
  Receipt Date: 20240705
  Transmission Date: 20241017
  Serious: Yes (Hospitalization, Other)
  Sender: AUROBINDO
  Company Number: FR-AFSSAPS-SE2024000519

PATIENT
  Age: 16 Year
  Sex: Male
  Weight: 67.3 kg

DRUGS (1)
  1. ISOTRETINOIN [Suspect]
     Active Substance: ISOTRETINOIN
     Indication: Acne
     Dosage: 10 MILLIGRAM, ONCE A DAY (FROM 10/12/2022 TO 12/21/2022: 5 MG/DAYTHEN FROM 12/21/2022: 10 MG/DAY)
     Route: 048
     Dates: start: 20221012, end: 202302

REACTIONS (1)
  - Persistent depressive disorder [Not Recovered/Not Resolved]

NARRATIVE: CASE EVENT DATE: 20230201
